FAERS Safety Report 26152602 (Version 1)
Quarter: 2025Q4

REPORT INFORMATION
  Report Type: Spontaneous
  Country: US (occurrence: US)
  Receive Date: 20251214
  Receipt Date: 20251214
  Transmission Date: 20260117
  Serious: No
  Sender: ELI LILLY AND COMPANY
  Company Number: US-ELI_LILLY_AND_COMPANY-US202512004038

PATIENT
  Age: 60 Year
  Sex: Female

DRUGS (5)
  1. MOUNJARO [Suspect]
     Active Substance: TIRZEPATIDE
     Indication: Product use in unapproved indication
     Dosage: UNK UNK, UNKNOWN
     Route: 065
     Dates: start: 202208
  2. MOUNJARO [Suspect]
     Active Substance: TIRZEPATIDE
     Indication: Product use in unapproved indication
     Dosage: 15 MG, UNKNOWN
     Route: 065
     Dates: end: 202307
  3. MOUNJARO [Suspect]
     Active Substance: TIRZEPATIDE
     Indication: Product use in unapproved indication
     Dosage: 15 MG, UNKNOWN
     Route: 065
     Dates: end: 202307
  4. MOUNJARO [Suspect]
     Active Substance: TIRZEPATIDE
     Indication: Product use in unapproved indication
     Dosage: 15 MG, UNKNOWN
     Route: 065
     Dates: end: 202307
  5. MOUNJARO [Suspect]
     Active Substance: TIRZEPATIDE
     Indication: Product use in unapproved indication
     Dosage: 15 MG, UNKNOWN
     Route: 065
     Dates: end: 202307

REACTIONS (3)
  - Off label use [Recovered/Resolved]
  - Nausea [Unknown]
  - Constipation [Unknown]

NARRATIVE: CASE EVENT DATE: 20220801
